FAERS Safety Report 10708203 (Version 1)
Quarter: 2015Q1

REPORT INFORMATION
  Report Type: Spontaneous
  Country: DE (occurrence: DE)
  Receive Date: 20150113
  Receipt Date: 20150113
  Transmission Date: 20150721
  Serious: Yes (Other)
  Sender: FDA-Public Use
  Company Number: GXKR2015DE000462

PATIENT

DRUGS (6)
  1. METOPROLOL [Suspect]
     Active Substance: METOPROLOL
     Dosage: MATERNAL DOSE: 50 MG, BID, GW 32 TILL 35.6
     Route: 064
  2. METOPROLOL [Suspect]
     Active Substance: METOPROLOL
     Indication: HYPERTENSION
     Dosage: MATERNAL DOSE: 25 MG, QD, UNTIL GW 32
     Route: 064
  3. FRAGMIN [Concomitant]
     Active Substance: DALTEPARIN SODIUM
     Indication: FACTOR II DEFICIENCY
     Route: 064
  4. L-THYROXINE//LEVOTHYROXINE [Concomitant]
     Indication: AUTOIMMUNE THYROIDITIS
     Dosage: MATERNAL DOSE: 75 UG, QD
     Route: 064
  5. FOLIC ACID. [Concomitant]
     Active Substance: FOLIC ACID
     Indication: PROPHYLAXIS OF NEURAL TUBE DEFECT
     Dosage: MATERNAL DOSE: 0.8 MG/D TILL 0.4
     Route: 064
  6. MISOPROSTOL. [Concomitant]
     Active Substance: MISOPROSTOL
     Indication: LABOUR INDUCTION
     Route: 064
     Dates: start: 20140511, end: 20140511

REACTIONS (4)
  - Hypotension [Recovered/Resolved]
  - Temperature regulation disorder [Recovered/Resolved]
  - Premature baby [Recovered/Resolved]
  - Hypoglycaemia neonatal [Recovered/Resolved]

NARRATIVE: CASE EVENT DATE: 20140513
